FAERS Safety Report 9290003 (Version 1)
Quarter: 2013Q2

REPORT INFORMATION
  Report Type: Spontaneous
  Country: CA (occurrence: CA)
  Receive Date: 20130515
  Receipt Date: 20130515
  Transmission Date: 20140414
  Serious: Yes (Other)
  Sender: FDA-Public Use
  Company Number: CA-BAYER-2013-056773

PATIENT
  Sex: Female

DRUGS (1)
  1. STIVARGA [Suspect]
     Indication: COLORECTAL CANCER METASTATIC

REACTIONS (7)
  - Fatigue [None]
  - Headache [None]
  - Nausea [None]
  - Dyspnoea [None]
  - Rectal haemorrhage [None]
  - Erythema [None]
  - Constipation [None]
